FAERS Safety Report 25019035 (Version 1)
Quarter: 2025Q1

REPORT INFORMATION
  Report Type: Spontaneous
  Country: FR (occurrence: FR)
  Receive Date: 20250227
  Receipt Date: 20250227
  Transmission Date: 20250408
  Serious: Yes (Hospitalization, Other)
  Sender: TEVA
  Company Number: None

PATIENT
  Age: 25 Year
  Sex: Male
  Weight: 65 kg

DRUGS (1)
  1. VENLAFAXINE [Suspect]
     Active Substance: VENLAFAXINE HYDROCHLORIDE
     Indication: Depression
     Dosage: VENLAFAXINE TEVA SANTE L.P
     Route: 048
     Dates: start: 20231106, end: 20241221

REACTIONS (6)
  - Asthenia [Recovered/Resolved]
  - Akathisia [Recovering/Resolving]
  - Swelling face [Recovered/Resolved]
  - Febrile convulsion [Recovered/Resolved]
  - Behaviour disorder [Recovering/Resolving]
  - Muscular weakness [Recovering/Resolving]

NARRATIVE: CASE EVENT DATE: 20240217
